FAERS Safety Report 5667052-2 (Version None)
Quarter: 2008Q1

REPORT INFORMATION
  Report Type: 
  Country: None (occurrence: None)
  Receive Date: 20080315
  Receipt Date: 20080110
  Transmission Date: 20080703
  Serious: No
  Sender: FDA-Public Use
  Company Number: US-ABBOTT-08P-163-0433413-00

PATIENT
  Sex: Male
  Weight: 109.5 kg

DRUGS (13)
  1. HUMIRA [Suspect]
     Indication: CROHN'S DISEASE
     Route: 058
     Dates: start: 20071107, end: 20071107
  2. HUMIRA [Suspect]
     Route: 058
     Dates: start: 20071121, end: 20071121
  3. HUMIRA [Suspect]
     Route: 058
     Dates: start: 20071212, end: 20080111
  4. HUMIRA [Suspect]
     Route: 058
     Dates: start: 20080111
  5. PRINZIDE [Suspect]
     Indication: HYPERTENSION
     Route: 048
     Dates: end: 20071101
  6. VENLAFAXINE HCL [Concomitant]
     Indication: DEPRESSION
     Route: 048
  7. FOLIC ACID [Concomitant]
     Indication: DRUG USE FOR UNKNOWN INDICATION
     Route: 048
  8. PREDNISONE [Concomitant]
     Indication: DRUG USE FOR UNKNOWN INDICATION
     Route: 048
  9. ATORVASTATIN CALCIUM [Concomitant]
     Indication: DRUG USE FOR UNKNOWN INDICATION
     Route: 048
  10. FENTANYL [Concomitant]
     Indication: DRUG USE FOR UNKNOWN INDICATION
     Route: 062
  11. FISH OIL [Concomitant]
     Indication: DRUG USE FOR UNKNOWN INDICATION
     Route: 048
  12. MULTI-VITAMIN [Concomitant]
     Indication: DRUG USE FOR UNKNOWN INDICATION
     Route: 048
  13. EXCEDRIN [Concomitant]
     Indication: DRUG USE FOR UNKNOWN INDICATION
     Route: 048

REACTIONS (2)
  - HYPOTENSION [None]
  - SYNCOPE [None]
